FAERS Safety Report 21300228 (Version 5)
Quarter: 2023Q1

REPORT INFORMATION
  Report Type: Spontaneous
  Country: JP (occurrence: JP)
  Receive Date: 20220906
  Receipt Date: 20230208
  Transmission Date: 20230417
  Serious: Yes (Other)
  Sender: FDA-Public Use
  Company Number: JP-ONO-2022JP023053

PATIENT
  Age: 74 Year
  Sex: Female

DRUGS (3)
  1. OPDIVO [Suspect]
     Active Substance: NIVOLUMAB
     Indication: Transitional cell carcinoma
     Dosage: 240 MG, Q2W
     Route: 041
     Dates: start: 20220603, end: 20220902
  2. OLMESARTAN MEDOXOMIL [Concomitant]
     Active Substance: OLMESARTAN MEDOXOMIL
     Dosage: UNK?DRUG DOSAGE FORM: ORAL DRUG UNSPECIFIED FORM
     Route: 048
  3. ROSUVASTATIN [Concomitant]
     Active Substance: ROSUVASTATIN
     Dosage: UNK?DRUG DOSAGE FORM: ORAL DRUG UNSPECIFIED FORM
     Route: 048

REACTIONS (5)
  - Normocytic anaemia [Not Recovered/Not Resolved]
  - Nephrogenic anaemia [Not Recovered/Not Resolved]
  - Tubulointerstitial nephritis [Unknown]
  - Urinary tract infection [Recovered/Resolved]
  - Chronic kidney disease [Unknown]

NARRATIVE: CASE EVENT DATE: 20220819
